FAERS Safety Report 8539857-1 (Version None)
Quarter: 2012Q3

REPORT INFORMATION
  Report Type: 
  Country: None (occurrence: None)
  Receive Date: 20120726
  Receipt Date: 20120717
  Transmission Date: 20120928
  Serious: Yes (Disabling)
  Sender: FDA-Public Use
  Company Number: GB-TEVA-348738ISR

PATIENT
  Age: 72 Year
  Sex: Female
  Weight: 71 kg

DRUGS (4)
  1. TERBINAFINE HCL [Suspect]
     Indication: ONYCHOMYCOSIS
     Route: 048
     Dates: start: 20120601, end: 20120618
  2. RALOXIFENE HCL [Concomitant]
  3. OMEPRAZOLE [Concomitant]
  4. TOLTERODINE TARTRATE [Concomitant]

REACTIONS (6)
  - INSOMNIA [None]
  - ERYTHEMA [None]
  - PRURITUS [None]
  - RASH PUSTULAR [None]
  - ACUTE GENERALISED EXANTHEMATOUS PUSTULOSIS [None]
  - SKIN EXFOLIATION [None]
